FAERS Safety Report 22065033 (Version 2)
Quarter: 2023Q2

REPORT INFORMATION
  Report Type: Report from Study
  Country: US (occurrence: US)
  Receive Date: 20230306
  Receipt Date: 20230607
  Transmission Date: 20230722
  Serious: Yes (Death)
  Sender: FDA-Public Use
  Company Number: US-002147023-NVSC2023US051039

PATIENT
  Sex: Male

DRUGS (1)
  1. AFINITOR [Suspect]
     Active Substance: EVEROLIMUS
     Indication: Product used for unknown indication
     Dosage: 7.5 MG, QD
     Route: 048
     Dates: start: 20230112

REACTIONS (2)
  - Neoplasm malignant [Fatal]
  - Illness [Fatal]
